FAERS Safety Report 7349431-0 (Version None)
Quarter: 2011Q1

REPORT INFORMATION
  Report Type: 
  Country: None (occurrence: None)
  Receive Date: 20110314
  Receipt Date: 20100811
  Transmission Date: 20110831
  Serious: Yes (Other)
  Sender: FDA-Public Use
  Company Number: US-ABBOTT-10P-163-0661437-00

PATIENT
  Sex: Female

DRUGS (2)
  1. DEPAKOTE [Suspect]
     Indication: ABNORMAL BEHAVIOUR
  2. DEPAKOTE [Suspect]
     Indication: AFFECTIVE DISORDER
     Dosage: UNKNOWN DOSE

REACTIONS (2)
  - CEREBRAL ATROPHY [None]
  - COGNITIVE DISORDER [None]
